FAERS Safety Report 19062962 (Version 1)
Quarter: 2021Q1

REPORT INFORMATION
  Report Type: Other
  Country: US (occurrence: US)
  Receive Date: 20210326
  Receipt Date: 20210326
  Transmission Date: 20210420
  Serious: Yes (Other)
  Sender: FDA-Public Use
  Company Number: US-ROCHE-2796225

PATIENT
  Sex: Male

DRUGS (1)
  1. ALECENSA [Suspect]
     Active Substance: ALECTINIB HYDROCHLORIDE
     Indication: BRAIN NEOPLASM MALIGNANT
     Dosage: TAKE 4 CAPSULE (S) PER MOUTH TWICE A DAY
     Route: 048

REACTIONS (3)
  - Pain in extremity [Unknown]
  - Off label use [Unknown]
  - Lung neoplasm malignant [Unknown]
